FAERS Safety Report 23653917 (Version 1)
Quarter: 2024Q1

REPORT INFORMATION
  Report Type: Spontaneous
  Country: GB (occurrence: GB)
  Receive Date: 20240320
  Receipt Date: 20240320
  Transmission Date: 20240409
  Serious: Yes (Other)
  Sender: FDA-Public Use
  Company Number: None

PATIENT
  Age: 36 Year
  Sex: Female
  Weight: 70 kg

DRUGS (4)
  1. CIPROFLOXACIN [Suspect]
     Active Substance: CIPROFLOXACIN
     Indication: Urinary tract infection
     Dosage: 50 MG, BID
     Route: 048
     Dates: start: 20240302, end: 20240306
  2. CIPROFLOXACIN [Suspect]
     Active Substance: CIPROFLOXACIN
     Indication: Kidney infection
  3. NITROFURANTOIN [Concomitant]
     Active Substance: NITROFURANTOIN
     Indication: Urinary tract infection
     Dosage: UNK
     Dates: start: 20240301, end: 20240302
  4. NITROFURANTOIN [Concomitant]
     Active Substance: NITROFURANTOIN
     Indication: Kidney infection

REACTIONS (12)
  - Muscular weakness [Recovering/Resolving]
  - Panic attack [Recovering/Resolving]
  - Confusional state [Recovering/Resolving]
  - Insomnia [Recovering/Resolving]
  - Chills [Recovering/Resolving]
  - Anxiety [Not Recovered/Not Resolved]
  - Arthralgia [Recovering/Resolving]
  - Myalgia [Recovered/Resolved]
  - Fatigue [Recovering/Resolving]
  - Ear pain [Not Recovered/Not Resolved]
  - Back pain [Recovering/Resolving]
  - Depressed mood [None]

NARRATIVE: CASE EVENT DATE: 20240303
